FAERS Safety Report 8807902 (Version 1)
Quarter: 2012Q4

REPORT INFORMATION
  Report Type: 
  Country: US (occurrence: US)
  Receive Date: 20120925
  Receipt Date: 20120925
  Transmission Date: 20130627
  Serious: Yes (Hospitalization)
  Sender: FDA-Public Use
  Company Number: US-ROCHE-1135926

PATIENT

DRUGS (3)
  1. PULMOZYME [Suspect]
     Indication: ASTHMA
     Route: 065
  2. ALBUTEROL [Concomitant]
     Indication: ASTHMA
     Route: 065
  3. IPRATROPIUM [Concomitant]
     Indication: ASTHMA
     Route: 065

REACTIONS (1)
  - Forced expiratory volume decreased [Recovering/Resolving]
